FAERS Safety Report 25198332 (Version 1)
Quarter: 2025Q2

REPORT INFORMATION
  Report Type: Spontaneous
  Country: US (occurrence: None)
  Receive Date: 20250414
  Receipt Date: 20250414
  Transmission Date: 20250717
  Serious: Yes (Death, Life-Threatening, Hospitalization)
  Sender: FDA-CTU
  Company Number: None

PATIENT
  Age: 76 Year
  Sex: Female
  Weight: 84 kg

DRUGS (5)
  1. ZEPBOUND [Suspect]
     Active Substance: TIRZEPATIDE
     Indication: Weight decreased
     Route: 058
  2. AMLODIPINE [Concomitant]
     Active Substance: AMLODIPINE BESYLATE
  3. MELOXICAM [Concomitant]
     Active Substance: MELOXICAM
  4. MONTELUKAST [Concomitant]
     Active Substance: MONTELUKAST
  5. TRAMADOL [Concomitant]
     Active Substance: TRAMADOL

REACTIONS (10)
  - Nausea [None]
  - Vomiting [None]
  - Abdominal distension [None]
  - Colitis ischaemic [None]
  - Stoma site complication [None]
  - Necrosis [None]
  - Multiple organ dysfunction syndrome [None]
  - Acute kidney injury [None]
  - Ischaemic hepatitis [None]
  - Lactic acidosis [None]

NARRATIVE: CASE EVENT DATE: 20250214
